FAERS Safety Report 21181040 (Version 1)
Quarter: 2022Q3

REPORT INFORMATION
  Report Type: Spontaneous
  Country: US (occurrence: US)
  Receive Date: 20220806
  Receipt Date: 20220806
  Transmission Date: 20221026
  Serious: No
  Sender: FDA-Public Use
  Company Number: US-SANOFI-01102887

PATIENT
  Age: 65 Year
  Sex: Female

DRUGS (4)
  1. AUBAGIO [Suspect]
     Active Substance: TERIFLUNOMIDE
     Indication: Multiple sclerosis
     Dosage: 7 MG, QD
     Route: 048
     Dates: start: 20220411
  2. PROTONIX [Suspect]
     Active Substance: PANTOPRAZOLE SODIUM
     Dosage: UNK
  3. LORATADINE [Concomitant]
     Active Substance: LORATADINE
  4. BACLOFEN [Concomitant]
     Active Substance: BACLOFEN

REACTIONS (16)
  - Sinus disorder [Unknown]
  - Headache [Unknown]
  - Nasal congestion [Unknown]
  - Fatigue [Unknown]
  - Decreased appetite [Unknown]
  - Dizziness [Unknown]
  - Blood cholesterol increased [Unknown]
  - Hypopnoea [Unknown]
  - Hernia repair [Unknown]
  - Hernia [Unknown]
  - Drug hypersensitivity [Unknown]
  - Hysterectomy [Unknown]
  - Blood pressure increased [Unknown]
  - Nausea [Unknown]
  - Diarrhoea [Unknown]
  - Alopecia [Unknown]

NARRATIVE: CASE EVENT DATE: 20220101
